FAERS Safety Report 23238868 (Version 2)
Quarter: 2024Q4

REPORT INFORMATION
  Report Type: Report from Study
  Country: US (occurrence: US)
  Receive Date: 20231129
  Receipt Date: 20241128
  Transmission Date: 20250114
  Serious: Yes (Hospitalization, Disabling, Other)
  Sender: TAKEDA
  Company Number: US-TAKEDA-2023TUS115275

PATIENT
  Age: 73 Year
  Sex: Female

DRUGS (2)
  1. GLASSIA [Suspect]
     Active Substance: .ALPHA.1-PROTEINASE INHIBITOR HUMAN
     Indication: Supplementation therapy
     Dosage: UNK
  2. GLASSIA [Suspect]
     Active Substance: .ALPHA.1-PROTEINASE INHIBITOR HUMAN
     Indication: Alpha-1 antitrypsin deficiency

REACTIONS (6)
  - Pneumonia [Recovering/Resolving]
  - Sepsis [Recovered/Resolved with Sequelae]
  - Illness [Recovered/Resolved with Sequelae]
  - Body height decreased [Recovered/Resolved with Sequelae]
  - Wound infection [Recovered/Resolved with Sequelae]
  - Limb injury [Recovered/Resolved with Sequelae]

NARRATIVE: CASE EVENT DATE: 20240901
